FAERS Safety Report 17682221 (Version 5)
Quarter: 2025Q3

REPORT INFORMATION
  Report Type: Report from Study
  Country: EU (occurrence: EU)
  Receive Date: 20200418
  Receipt Date: 20250703
  Transmission Date: 20251020
  Serious: Yes (Death, Hospitalization, Other)
  Sender: AUROBINDO
  Company Number: EU-MYLANLABS-2020M1032787

PATIENT
  Age: 52 Year
  Sex: Male

DRUGS (5)
  1. AMOXICILLIN\CLAVULANIC ACID [Suspect]
     Active Substance: AMOXICILLIN\CLAVULANIC ACID
     Indication: Pneumonia aspiration
     Route: 065
  2. PIPERACILLIN SODIUM\TAZOBACTAM SODIUM [Suspect]
     Active Substance: PIPERACILLIN SODIUM\TAZOBACTAM SODIUM
     Indication: Sepsis
     Dosage: 4.5 GRAM, FOUR TIMES/DAY
     Route: 042
     Dates: start: 20150213, end: 20150214
  3. PIPERACILLIN SODIUM\TAZOBACTAM SODIUM [Suspect]
     Active Substance: PIPERACILLIN SODIUM\TAZOBACTAM SODIUM
     Indication: Actinomycosis
  4. VANCOMYCIN [Suspect]
     Active Substance: VANCOMYCIN
     Indication: Actinomycosis
     Route: 042
     Dates: start: 20150213, end: 20150214
  5. VANCOMYCIN [Suspect]
     Active Substance: VANCOMYCIN
     Indication: Sepsis

REACTIONS (8)
  - Respiratory failure [Fatal]
  - Acute pulmonary oedema [Fatal]
  - Condition aggravated [Fatal]
  - Septic shock [Fatal]
  - Empyema [Fatal]
  - Drug ineffective [Fatal]
  - Pleural infection [Unknown]
  - Dyspnoea [Unknown]
